FAERS Safety Report 5411240-7 (Version None)
Quarter: 2007Q3

REPORT INFORMATION
  Report Type: 
  Country: None (occurrence: None)
  Receive Date: 20070810
  Receipt Date: 20070803
  Transmission Date: 20080115
  Serious: Yes (Life-Threatening)
  Sender: FDA-Public Use
  Company Number: B0482698A

PATIENT
  Age: 41 Year
  Sex: Male

DRUGS (2)
  1. KIVEXA [Suspect]
     Indication: HIV INFECTION
     Route: 048
  2. ANTI-VIRAL MEDICATION [Concomitant]
     Indication: HIV INFECTION
     Route: 065

REACTIONS (3)
  - INTERSTITIAL LUNG DISEASE [None]
  - LACTIC ACIDOSIS [None]
  - SHOCK [None]
